FAERS Safety Report 5285951-0 (Version None)
Quarter: 2007Q2

REPORT INFORMATION
  Report Type: 
  Country: None (occurrence: None)
  Receive Date: 20070404
  Receipt Date: 20070329
  Transmission Date: 20071010
  Serious: Yes (Hospitalization)
  Sender: FDA-Public Use
  Company Number: FRWYE287530MAR07

PATIENT
  Age: 83 Year
  Sex: Female
  Weight: 84 kg

DRUGS (1)
  1. ADVIL [Suspect]
     Indication: OSTEOARTHRITIS
     Dosage: 400 MG TOTAL DAILY
     Route: 048
     Dates: start: 20050101, end: 20070217

REACTIONS (4)
  - DUODENAL ULCER HAEMORRHAGE [None]
  - DUODENITIS [None]
  - HAEMORRHAGIC ANAEMIA [None]
  - HELICOBACTER GASTRITIS [None]
